FAERS Safety Report 9297703 (Version 2)
Quarter: 2013Q3

REPORT INFORMATION
  Report Type: Report from Study
  Country: US (occurrence: US)
  Receive Date: 20130520
  Receipt Date: 20130930
  Transmission Date: 20140515
  Serious: Yes (Hospitalization, Other)
  Sender: FDA-Public Use
  Company Number: PHEH2013US010615

PATIENT
  Age: 36 Year
  Sex: Female
  Weight: 71.66 kg

DRUGS (1)
  1. GILENYA [Suspect]
     Indication: MULTIPLE SCLEROSIS
     Dosage: 0.5 MG, QD
     Route: 048
     Dates: start: 20130502

REACTIONS (3)
  - Chest pain [Unknown]
  - Back pain [Unknown]
  - Multiple sclerosis relapse [Unknown]
